FAERS Safety Report 18641840 (Version 1)
Quarter: 2020Q4

REPORT INFORMATION
  Report Type: Spontaneous
  Country: SI (occurrence: SI)
  Receive Date: 20201221
  Receipt Date: 20201221
  Transmission Date: 20210114
  Serious: Yes (Other)
  Sender: FDA-Public Use
  Company Number: SI-MYLANLABS-2020M1103401

PATIENT
  Age: 82 Year
  Sex: Female

DRUGS (1)
  1. IBUPROFEN. [Suspect]
     Active Substance: IBUPROFEN
     Indication: PRODUCT USED FOR UNKNOWN INDICATION
     Dosage: 24 GRAM, QD
     Route: 048

REACTIONS (5)
  - Intentional overdose [Unknown]
  - Renal impairment [Unknown]
  - Suicide attempt [Unknown]
  - Abdominal pain upper [Unknown]
  - Vomiting [Unknown]
